FAERS Safety Report 8143377-6 (Version None)
Quarter: 2012Q1

REPORT INFORMATION
  Report Type: 
  Country: None (occurrence: None)
  Receive Date: 20120217
  Receipt Date: 20120207
  Transmission Date: 20120608
  Serious: Yes (Other)
  Sender: FDA-Public Use
  Company Number: CA-JNJFOC-20120113528

PATIENT
  Sex: Male
  Weight: 102.3 kg

DRUGS (11)
  1. TRAZODONE HYDROCHLORIDE [Concomitant]
     Route: 065
  2. VITAMIN D [Concomitant]
     Route: 065
  3. POTASSIUM CHLORIDE [Concomitant]
     Route: 065
  4. CALCIUM [Concomitant]
     Route: 065
  5. TAMSULOSIN HCL [Concomitant]
     Route: 065
  6. REMICADE [Suspect]
     Indication: CROHN'S DISEASE
     Route: 042
     Dates: start: 20110829
  7. VITAMIN B-12 [Concomitant]
     Route: 050
  8. FLOMAX [Concomitant]
     Route: 065
  9. METHOTREXATE [Concomitant]
     Route: 065
  10. PANTOPRAZOLE SODIUM [Concomitant]
     Route: 065
  11. CITALOPRAM HYDROBROMIDE [Concomitant]
     Route: 065

REACTIONS (1)
  - LACERATION [None]
